FAERS Safety Report 6903960-X (Version None)
Quarter: 2010Q3

REPORT INFORMATION
  Report Type: 
  Country: None (occurrence: None)
  Receive Date: 20100804
  Receipt Date: 20090205
  Transmission Date: 20110219
  Serious: No
  Sender: FDA-Public Use
  Company Number: US-PFIZER INC-2009166848

PATIENT
  Sex: Female
  Weight: 81.6 kg

DRUGS (2)
  1. LYRICA [Suspect]
     Indication: FIBROMYALGIA
     Dosage: 50 MG, 2X/DAY
     Dates: start: 20081230, end: 20090205
  2. COUMADIN [Concomitant]
     Dosage: UNK

REACTIONS (3)
  - MYALGIA [None]
  - OEDEMA PERIPHERAL [None]
  - PROTHROMBIN TIME ABNORMAL [None]
